FAERS Safety Report 23332628 (Version 1)
Quarter: 2023Q4

REPORT INFORMATION
  Report Type: Spontaneous
  Country: US (occurrence: None)
  Receive Date: 20231222
  Receipt Date: 20231222
  Transmission Date: 20240109
  Serious: Yes (Death)
  Sender: FDA-Public Use
  Company Number: None

PATIENT
  Age: 72 Year
  Sex: 0
  Weight: 98.55 kg

DRUGS (19)
  1. POMALYST [Suspect]
     Active Substance: POMALIDOMIDE
     Indication: Plasma cell myeloma
     Dosage: FREQUENCY : DAILY;?
     Route: 048
     Dates: start: 20220419
  2. ACYCLOVIR [Concomitant]
     Active Substance: ACYCLOVIR
  3. atorvastatin 10 mg tablet [Concomitant]
  4. Celebrex 50 mg capsule [Concomitant]
  5. DEXAMETHASONE [Concomitant]
     Active Substance: DEXAMETHASONE
  6. ELIQUIS [Concomitant]
     Active Substance: APIXABAN
  7. ferrous sulfate 325 mg (65 mg iron) tablet,delayed release [Concomitant]
  8. fluticasone propionate 50 mcg/actuation nasal spray,suspension [Concomitant]
  9. glyburide 2.5 mg tablet [Concomitant]
  10. Lasix 40 mg tablet [Concomitant]
  11. METFORMIN [Concomitant]
     Active Substance: METFORMIN HYDROCHLORIDE
  12. Miralax 17 gram oral powder packe [Concomitant]
  13. ondansetron HCl 8 mg tablet [Concomitant]
  14. OXYCODONE [Concomitant]
     Active Substance: OXYCODONE
  15. Ozempic 0.25 mg or 0.5 mg (2 mg/3 mL) subcutaneous pen injecto [Concomitant]
  16. it	potassium chloride ER 10 mEq tablet,extended release [Concomitant]
  17. Remeron 15 mg tablet [Concomitant]
  18. Rybelsus 3 mg tablet [Concomitant]
  19. zolpidem 5 mg tablet [Concomitant]

REACTIONS (1)
  - Death [None]

NARRATIVE: CASE EVENT DATE: 20231126
